FAERS Safety Report 16638675 (Version 2)
Quarter: 2019Q3

REPORT INFORMATION
  Report Type: Spontaneous
  Country: RO (occurrence: RO)
  Receive Date: 20190726
  Receipt Date: 20190903
  Transmission Date: 20191004
  Serious: Yes (Other)
  Sender: FDA-Public Use
  Company Number: RO-MYLANLABS-2019M1067419

PATIENT
  Age: 25 Year
  Sex: Female

DRUGS (4)
  1. BOSENTAN. [Concomitant]
     Active Substance: BOSENTAN
     Indication: RIGHT-TO-LEFT CARDIAC SHUNT
  2. BOSENTAN. [Concomitant]
     Active Substance: BOSENTAN
     Indication: SECONDARY HYPERTENSION
     Dosage: 125 MILLIGRAM, BID
  3. SILDENAFIL. [Suspect]
     Active Substance: SILDENAFIL
     Indication: SECONDARY HYPERTENSION
     Dosage: 20 MILLIGRAM, TID
  4. SILDENAFIL. [Suspect]
     Active Substance: SILDENAFIL
     Indication: RIGHT-TO-LEFT CARDIAC SHUNT

REACTIONS (1)
  - Therapeutic product effect decreased [Unknown]
